FAERS Safety Report 24686467 (Version 1)
Quarter: 2024Q4

REPORT INFORMATION
  Report Type: Spontaneous
  Country: US (occurrence: US)
  Receive Date: 20241202
  Receipt Date: 20241202
  Transmission Date: 20250115
  Serious: Yes (Hospitalization, Other)
  Sender: DR REDDYS
  Company Number: US-DRL-USA-LIT/USA/24/0017662

PATIENT
  Age: 79 Year
  Sex: Female

DRUGS (4)
  1. LEVOFLOXACIN [Suspect]
     Active Substance: LEVOFLOXACIN
     Indication: Pasteurella infection
     Route: 048
  2. CEFTAZIDIME [Suspect]
     Active Substance: CEFTAZIDIME
     Indication: Pasteurella infection
     Route: 033
  3. CEFDINIR [Suspect]
     Active Substance: CEFDINIR
     Indication: Pasteurella infection
     Route: 048
  4. CEFTRIAXONE [Suspect]
     Active Substance: CEFTRIAXONE
     Indication: Pasteurella infection
     Route: 042

REACTIONS (2)
  - Catheter site abscess [Recovered/Resolved]
  - Drug ineffective for unapproved indication [Recovered/Resolved]
